FAERS Safety Report 14376411 (Version 1)
Quarter: 2018Q1

REPORT INFORMATION
  Report Type: Spontaneous
  Country: FR (occurrence: FR)
  Receive Date: 20180111
  Receipt Date: 20180111
  Transmission Date: 20180509
  Serious: Yes (Other)
  Sender: FDA-Public Use
  Company Number: FR-009507513-1801FRA003543

PATIENT
  Age: 81 Year
  Sex: Male

DRUGS (1)
  1. ZOCOR [Suspect]
     Active Substance: SIMVASTATIN
     Dosage: 1 DF, QD
     Route: 048

REACTIONS (2)
  - Contraindicated drug prescribed [Unknown]
  - Bronchitis bacterial [Unknown]
